FAERS Safety Report 5149795-2 (Version None)
Quarter: 2006Q4

REPORT INFORMATION
  Report Type: 
  Country: None (occurrence: None)
  Receive Date: 20061108
  Receipt Date: 20061027
  Transmission Date: 20070319
  Serious: Yes (Death, Hospitalization)
  Sender: FDA-Public Use
  Company Number: I03-341-049

PATIENT
  Age: 55 Year
  Sex: Male
  Weight: 108 kg

DRUGS (19)
  1. VELCADE [Suspect]
     Indication: PANCREATIC CARCINOMA METASTATIC
     Dosage: 1 MG/M2, UNK, IV BOLUS
     Route: 040
     Dates: start: 20030428, end: 20030501
  2. GEMCITABINE(GEMCITABINE) SOLUTION (EXCEPT SYRUP) [Suspect]
     Indication: PANCREATIC CARCINOMA METASTATIC
     Dosage: 1000 MG/M2, UNK, INTRAVENOUS
     Route: 042
     Dates: start: 20030428, end: 20030601
  3. ACETYLSALICYLIC AICD (ACETYLSALICYLIC ACID) [Concomitant]
  4. DICYCLOMINE HCL [Concomitant]
  5. LEVENOX (HEPARIN-FRACTION SODIUM SALT) [Concomitant]
  6. FELODIPINE [Concomitant]
  7. FENTANYL [Concomitant]
  8. FOLIC ACID [Concomitant]
  9. INSULIN (INSULIN) [Concomitant]
  10. LACTULOSE [Concomitant]
  11. LEVOFLOXACIN [Concomitant]
  12. LISINOPRIL [Concomitant]
  13. METOCLOPRAMIDE [Concomitant]
  14. METOPROLOL TARTRATE [Concomitant]
  15. MORPHINE [Concomitant]
  16. SIMVASTATIN (SIMVASTATIN0 [Concomitant]
  17. SPIRONOLACTONE [Concomitant]
  18. TEMAZEPAM [Concomitant]
  19. WARFARIN SODIUM [Concomitant]

REACTIONS (10)
  - BLOOD CALCIUM DECREASED [None]
  - BLOOD SODIUM DECREASED [None]
  - BODY TEMPERATURE DECREASED [None]
  - CARDIO-RESPIRATORY ARREST [None]
  - GENERAL PHYSICAL HEALTH DETERIORATION [None]
  - HYPOTENSION [None]
  - LOSS OF CONSCIOUSNESS [None]
  - MULTI-ORGAN FAILURE [None]
  - OXYGEN SATURATION DECREASED [None]
  - TACHYCARDIA [None]
